FAERS Safety Report 22027522 (Version 4)
Quarter: 2024Q4

REPORT INFORMATION
  Report Type: Spontaneous
  Country: JP (occurrence: JP)
  Receive Date: 20230223
  Receipt Date: 20241226
  Transmission Date: 20250114
  Serious: Yes (Other)
  Sender: ALEXION PHARMACEUTICALS
  Company Number: 2023A040270

PATIENT
  Age: 85 Year

DRUGS (3)
  1. ANDEXXA [Suspect]
     Active Substance: ANDEXANET ALFA
     Dosage: DOSE UNKNOWN
  2. ANDEXXA [Suspect]
     Active Substance: ANDEXANET ALFA
     Dosage: 880 MILLIGRAM
  3. ANDEXXA [Suspect]
     Active Substance: ANDEXANET ALFA
     Dosage: 880 MILLIGRAM

REACTIONS (1)
  - Cerebral artery embolism [Recovering/Resolving]
